FAERS Safety Report 8519206-5 (Version None)
Quarter: 2012Q3

REPORT INFORMATION
  Report Type: 
  Country: None (occurrence: None)
  Receive Date: 20120709
  Receipt Date: 20120625
  Transmission Date: 20120928
  Serious: Yes (Other)
  Sender: FDA-Public Use
  Company Number: JPI-P-022108

PATIENT
  Age: 36 Year
  Sex: Female

DRUGS (3)
  1. XYREM [Suspect]
     Indication: PRODUCT USED FOR UNKNOWN INDICATION
     Dosage: 4.5;6;9 GM (2.25 GM, 2 IN 1 D) ORAL
     Route: 048
     Dates: start: 20041028, end: 20050210
  2. XYREM [Suspect]
     Indication: PRODUCT USED FOR UNKNOWN INDICATION
     Dosage: 4.5;6;9 GM (2.25 GM, 2 IN 1 D) ORAL
     Route: 048
     Dates: start: 20050211, end: 20051012
  3. XYREM [Suspect]
     Indication: PRODUCT USED FOR UNKNOWN INDICATION
     Dosage: 4.5;6;9 GM (2.25 GM, 2 IN 1 D) ORAL
     Route: 048
     Dates: start: 20051013

REACTIONS (1)
  - HEPATIC FAILURE [None]
